FAERS Safety Report 8993521 (Version 1)
Quarter: 2013Q1

REPORT INFORMATION
  Report Type: Report from Study
  Country: ZA (occurrence: ZA)
  Receive Date: 20130102
  Receipt Date: 20130102
  Transmission Date: 20140127
  Serious: Yes (Death, Life-Threatening, Hospitalization)
  Sender: FDA-Public Use
  Company Number: ZA-BRISTOL-MYERS SQUIBB COMPANY-14986814

PATIENT
  Age: 80 Year
  Sex: Male

DRUGS (4)
  1. DASATINIB [Suspect]
     Indication: PROSTATE CANCER
     Dosage: 1DF- 100 (NO UNITS SPECIFIED); INTERRUPTED IN 16FEB02010
     Route: 048
     Dates: start: 20100121, end: 20100216
  2. DOCETAXEL [Suspect]
     Indication: PROSTATE CANCER
     Route: 042
  3. PREDNISONE [Suspect]
     Indication: PROSTATE CANCER
     Route: 048
  4. DEXAMETHASONE [Suspect]
     Indication: PROSTATE CANCER

REACTIONS (6)
  - Renal failure [Fatal]
  - Malignant neoplasm progression [Fatal]
  - Thrombocytopenia [Fatal]
  - Leukopenia [Fatal]
  - Pneumonia [Fatal]
  - Neutropenia [Recovered/Resolved]
